FAERS Safety Report 24928780 (Version 4)
Quarter: 2025Q1

REPORT INFORMATION
  Report Type: Spontaneous
  Country: JP (occurrence: JP)
  Receive Date: 20250205
  Receipt Date: 20250312
  Transmission Date: 20250409
  Serious: Yes (Hospitalization, Other)
  Sender: CSL BEHRING
  Company Number: JP-BEH-2025194194

PATIENT
  Age: 25 Year
  Sex: Female

DRUGS (13)
  1. HUMAN C1-ESTERASE INHIBITOR [Suspect]
     Active Substance: HUMAN C1-ESTERASE INHIBITOR
     Indication: Hereditary angioedema with normal C1 esterase inhibitor
     Route: 042
  2. HUMAN C1-ESTERASE INHIBITOR [Suspect]
     Active Substance: HUMAN C1-ESTERASE INHIBITOR
     Indication: Hereditary angioedema with normal C1 esterase inhibitor
     Route: 058
  3. HUMAN C1-ESTERASE INHIBITOR [Suspect]
     Active Substance: HUMAN C1-ESTERASE INHIBITOR
     Indication: Prophylaxis
  4. ICATIBANT ACETATE [Concomitant]
     Active Substance: ICATIBANT ACETATE
     Indication: Hereditary angioedema with normal C1 esterase inhibitor
  5. LANADELUMAB [Concomitant]
     Active Substance: LANADELUMAB
     Indication: Hereditary angioedema with normal C1 esterase inhibitor
  6. LANADELUMAB [Concomitant]
     Active Substance: LANADELUMAB
     Indication: Prophylaxis
  7. RISPERIDONE [Concomitant]
     Active Substance: RISPERIDONE
     Indication: Anxiety
  8. RISPERIDONE [Concomitant]
     Active Substance: RISPERIDONE
     Indication: Panic attack
  9. MORPHINE [Concomitant]
     Active Substance: MORPHINE
     Indication: Pain management
     Route: 041
  10. PROPOFOL [Concomitant]
     Active Substance: PROPOFOL
     Indication: Pain
  11. EPINEPHRINE [Concomitant]
     Active Substance: EPINEPHRINE
     Indication: Obstructive airways disorder
  12. EPINEPHRINE [Concomitant]
     Active Substance: EPINEPHRINE
     Indication: Cough
  13. EPINEPHRINE [Concomitant]
     Active Substance: EPINEPHRINE
     Indication: Dysphonia

REACTIONS (35)
  - Hereditary angioedema [Unknown]
  - Abdominal distension [Unknown]
  - Gastrointestinal oedema [Unknown]
  - Oedema peripheral [Unknown]
  - Urinary retention [Unknown]
  - Swollen tongue [Unknown]
  - Swelling of eyelid [Unknown]
  - Lip swelling [Unknown]
  - Glossodynia [Unknown]
  - Cough [Unknown]
  - Dysphonia [Unknown]
  - Obstructive airways disorder [Unknown]
  - Oedema peripheral [Unknown]
  - Urticaria [Unknown]
  - Erythema [Unknown]
  - Preterm premature rupture of membranes [Unknown]
  - Hereditary angioedema [Unknown]
  - Urinary retention [Unknown]
  - Hereditary angioedema [Unknown]
  - Abdominal pain [Unknown]
  - Swelling of eyelid [Unknown]
  - Swollen tongue [Unknown]
  - Respiratory disorder [Unknown]
  - Abdominal distension [Unknown]
  - Vulvovaginal swelling [Unknown]
  - Hereditary angioedema [Unknown]
  - Panic attack [Unknown]
  - Abdominal pain [Unknown]
  - Pain [Unknown]
  - Stress [Unknown]
  - Pain [Unknown]
  - Bladder pain [Unknown]
  - Catheter site pain [Unknown]
  - Anxiety [Unknown]
  - Maternal exposure during pregnancy [Unknown]
